FAERS Safety Report 14110244 (Version 2)
Quarter: 2017Q4

REPORT INFORMATION
  Report Type: Report from Study
  Country: CA (occurrence: CA)
  Receive Date: 20171020
  Receipt Date: 20171220
  Transmission Date: 20180321
  Serious: Yes (Other)
  Sender: FDA-Public Use
  Company Number: CA-ROCHE-2007614

PATIENT
  Sex: Female

DRUGS (15)
  1. ZYTRAM [Concomitant]
     Active Substance: TRAMADOL HYDROCHLORIDE
  2. ACETAMINOPHEN. [Concomitant]
     Active Substance: ACETAMINOPHEN
     Indication: PREMEDICATION
     Route: 048
     Dates: start: 20170921
  3. METHYLPREDNISOLONE. [Concomitant]
     Active Substance: METHYLPREDNISOLONE
     Indication: PREMEDICATION
     Route: 042
     Dates: start: 20170921
  4. DIPHENHYDRAMINE. [Concomitant]
     Active Substance: DIPHENHYDRAMINE
     Indication: PREMEDICATION
     Route: 048
     Dates: start: 20170921
  5. GABAPENTIN. [Concomitant]
     Active Substance: GABAPENTIN
  6. METHOTREXATE. [Concomitant]
     Active Substance: METHOTREXATE
  7. RITUXAN [Suspect]
     Active Substance: RITUXIMAB
     Indication: RHEUMATOID ARTHRITIS
     Dosage: FREQUENCY: DAYS 1, 15?MOST RECENT  RITUXAN DOSE WAS RECEIVED ON 03/OCT/2017.
     Route: 042
     Dates: start: 20170921
  8. TRYPTOPHAN [Concomitant]
     Active Substance: TRYPTOPHAN
  9. QUINAPRIL. [Concomitant]
     Active Substance: QUINAPRIL
  10. RELPAX [Concomitant]
     Active Substance: ELETRIPTAN HYDROBROMIDE
  11. TYLENOL WITH CODEINE [Concomitant]
     Active Substance: ACETAMINOPHEN\CODEINE PHOSPHATE
  12. SERTRALINE [Concomitant]
     Active Substance: SERTRALINE HYDROCHLORIDE
  13. TOPIRAMATE. [Concomitant]
     Active Substance: TOPIRAMATE
  14. LEUCOVORIN. [Concomitant]
     Active Substance: LEUCOVORIN
  15. TIZANIDINE. [Concomitant]
     Active Substance: TIZANIDINE

REACTIONS (3)
  - Dysgeusia [Not Recovered/Not Resolved]
  - Anosmia [Not Recovered/Not Resolved]
  - Dyspnoea [Not Recovered/Not Resolved]
